FAERS Safety Report 9845417 (Version 2)
Quarter: 2014Q2

REPORT INFORMATION
  Report Type: Spontaneous
  Country: US (occurrence: US)
  Receive Date: 20140127
  Receipt Date: 20140630
  Transmission Date: 20141212
  Serious: Yes (Death, Other)
  Sender: FDA-Public Use
  Company Number: US-CELGENEUS-163-21880-14013463

PATIENT
  Age: 79 Year
  Sex: Female

DRUGS (1)
  1. REVLIMID [Suspect]
     Indication: DIFFUSE LARGE B-CELL LYMPHOMA RECURRENT
     Dosage: 10 MILLIGRAM
     Route: 048
     Dates: start: 20131216, end: 20140101

REACTIONS (3)
  - Infection [Fatal]
  - Cerebrovascular accident [Fatal]
  - Diffuse large B-cell lymphoma [Unknown]
